FAERS Safety Report 4959707-X (Version None)
Quarter: 2006Q1

REPORT INFORMATION
  Report Type: 
  Country: None (occurrence: None)
  Receive Date: 20060327
  Receipt Date: 20060320
  Transmission Date: 20060701
  Serious: Yes (Death)
  Sender: FDA-Public Use
  Company Number: 2006-03-1144

PATIENT
  Age: 66 Year
  Sex: Male

DRUGS (1)
  1. FLUTAMIDE [Suspect]
     Indication: PROSTATE CANCER
     Dosage: 375 MG QD ORAL
     Route: 048
     Dates: start: 20050401

REACTIONS (2)
  - HEPATIC NEOPLASM MALIGNANT [None]
  - METASTASIS [None]
